FAERS Safety Report 8909179 (Version 1)
Quarter: 2012Q4

REPORT INFORMATION
  Report Type: Spontaneous
  Country: US (occurrence: None)
  Receive Date: 20121113
  Receipt Date: 20121113
  Transmission Date: 20130627
  Serious: No
  Sender: FDA-Public Use
  Company Number: None

PATIENT
  Age: 51 Year
  Sex: Female

DRUGS (1)
  1. ISONIAZID [Suspect]
     Dates: start: 20110310, end: 20110817

REACTIONS (11)
  - Drug-induced liver injury [None]
  - Oedema peripheral [None]
  - Fatigue [None]
  - Abdominal distension [None]
  - Ocular icterus [None]
  - Alanine aminotransferase increased [None]
  - Aspartate aminotransferase increased [None]
  - Blood alkaline phosphatase increased [None]
  - Ascites [None]
  - Hepatic neoplasm [None]
  - Blood immunoglobulin G decreased [None]
